FAERS Safety Report 6748765-8 (Version None)
Quarter: 2010Q2

REPORT INFORMATION
  Report Type: 
  Country: None (occurrence: None)
  Receive Date: 20100601
  Receipt Date: 20100519
  Transmission Date: 20101027
  Serious: Yes (Hospitalization, Other)
  Sender: FDA-Public Use
  Company Number: PHHY2010US28928

PATIENT
  Sex: Male

DRUGS (15)
  1. GLEEVEC [Interacting]
     Dosage: 400 MG, UNK
     Dates: start: 20090601
  2. GLEEVEC [Interacting]
     Dosage: 200 MG, UNK
  3. GLEEVEC [Interacting]
     Dosage: 400 MG, UNK
  4. LIPITOR [Suspect]
     Dosage: 80 MG, UNK
  5. SIMVASTATIN [Interacting]
  6. CARVEDILOL [Concomitant]
  7. FUROSEMIDE [Concomitant]
  8. GLIMEPIRIDE [Concomitant]
  9. METFORMIN HCL [Concomitant]
  10. LISINOPRIL [Concomitant]
  11. COUMADIN [Concomitant]
     Dosage: UNK
  12. FOLPLEX VITAMINS [Concomitant]
  13. ASPIRIN [Concomitant]
  14. NITROL [Concomitant]
  15. PRAVASTATIN [Concomitant]
     Dosage: UNK

REACTIONS (16)
  - ASCITES [None]
  - BONE PAIN [None]
  - DRUG INTERACTION [None]
  - EYE DISCHARGE [None]
  - EYE INFLAMMATION [None]
  - FATIGUE [None]
  - GAIT DISTURBANCE [None]
  - HEPATIC ENZYME INCREASED [None]
  - HEPATIC FUNCTION ABNORMAL [None]
  - LACRIMATION INCREASED [None]
  - MUSCLE DISORDER [None]
  - OCULAR HYPERAEMIA [None]
  - PROTEIN TOTAL ABNORMAL [None]
  - RENAL DISORDER [None]
  - SOMNOLENCE [None]
  - VISUAL IMPAIRMENT [None]
